FAERS Safety Report 7132596-3 (Version None)
Quarter: 2010Q4

REPORT INFORMATION
  Report Type: 
  Country: None (occurrence: None)
  Receive Date: 20101130
  Receipt Date: 20101130
  Transmission Date: 20110411
  Serious: Yes (Other)
  Sender: FDA-Public Use
  Company Number: None

PATIENT
  Age: 64 Year
  Sex: Female
  Weight: 113.3993 kg

DRUGS (1)
  1. PROPOXYPHENE HCL AND ACETAMINOPHEN [Suspect]
     Indication: RHEUMATOID ARTHRITIS
     Dosage: 100-650 MG TB 1TABLET TWICE A DA PO
     Route: 048
     Dates: start: 20090604, end: 20101123

REACTIONS (3)
  - HEART RATE IRREGULAR [None]
  - PNEUMONIA [None]
  - PRODUCT QUALITY ISSUE [None]
